FAERS Safety Report 16045216 (Version 1)
Quarter: 2019Q1

REPORT INFORMATION
  Report Type: Spontaneous
  Country: IT (occurrence: IT)
  Receive Date: 20190307
  Receipt Date: 20190307
  Transmission Date: 20190418
  Serious: Yes (Other)
  Sender: FDA-Public Use
  Company Number: IT-JNJFOC-20180326692

PATIENT
  Age: 70 Year
  Sex: Male
  Weight: 92 kg

DRUGS (2)
  1. IBUPROFEN. [Suspect]
     Active Substance: IBUPROFEN
     Indication: PERICARDITIS
     Route: 048
     Dates: start: 20180220
  2. IBUPROFEN. [Suspect]
     Active Substance: IBUPROFEN
     Route: 048

REACTIONS (1)
  - Hepatitis acute [Not Recovered/Not Resolved]

NARRATIVE: CASE EVENT DATE: 20180303
